FAERS Safety Report 4729124-6 (Version None)
Quarter: 2005Q3

REPORT INFORMATION
  Report Type: 
  Country: None (occurrence: None)
  Receive Date: 20050729
  Receipt Date: 20040601
  Transmission Date: 20060218
  Serious: Yes (Other)
  Sender: FDA-Public Use
  Company Number: US-GLAXOSMITHKLINE-A0512892A

PATIENT
  Age: 49 Year
  Sex: Female

DRUGS (5)
  1. IMITREX [Suspect]
     Indication: MIGRAINE
     Dosage: 100MG AS REQUIRED
     Route: 048
     Dates: start: 20040501
  2. IMITREX [Suspect]
     Dosage: 20MG AS REQUIRED
     Route: 045
  3. LITHIUM [Concomitant]
  4. PROZAC [Concomitant]
  5. SYNTHROID [Concomitant]

REACTIONS (4)
  - DRUG INEFFECTIVE [None]
  - EYE HAEMORRHAGE [None]
  - EYE PAIN [None]
  - VISION BLURRED [None]
